FAERS Safety Report 19947345 (Version 1)
Quarter: 2021Q4

REPORT INFORMATION
  Report Type: Spontaneous
  Country: DE (occurrence: DE)
  Receive Date: 20211012
  Receipt Date: 20211012
  Transmission Date: 20220303
  Serious: Yes (Congenital Anomaly, Other)
  Sender: FDA-Public Use
  Company Number: DE-EMBRYOTOX-202101243

PATIENT
  Age: 1 Day
  Sex: Female

DRUGS (5)
  1. LAMOTRIGINE [Suspect]
     Active Substance: LAMOTRIGINE
     Indication: Epilepsy
     Dosage: 525 [MG / D (UP TO 500)] / INITIALLY 500MG DAILY, DOSAGE INCREASED TO 525MG DAILY
     Route: 064
     Dates: start: 20200508, end: 20210129
  2. GRIPPEIMPFSTOFF [Concomitant]
     Active Substance: INFLUENZA VIRUS VACCINE
     Indication: Immunisation
     Route: 064
  3. METHYLDOPA [Concomitant]
     Active Substance: METHYLDOPA
     Indication: Gestational hypertension
     Dosage: 1000 [MG / D] / 500-250-250 MG DAILY
     Route: 064
  4. IMPFSTOFF POLIO/IMPFSTOFF PERTUSSIS/IMPFSTOFF DIPHTHERIE [Concomitant]
     Indication: Immunisation
     Route: 064
  5. FOLIC ACID [Concomitant]
     Active Substance: FOLIC ACID
     Indication: Prophylaxis of neural tube defect
     Route: 064
     Dates: start: 20200508, end: 20210129

REACTIONS (3)
  - Retrognathia [Unknown]
  - Cleft palate [Not Recovered/Not Resolved]
  - Foetal exposure during pregnancy [Unknown]

NARRATIVE: CASE EVENT DATE: 20200508
